FAERS Safety Report 18564224 (Version 1)
Quarter: 2020Q4

REPORT INFORMATION
  Report Type: Spontaneous
  Country: US (occurrence: US)
  Receive Date: 20201130
  Receipt Date: 20201130
  Transmission Date: 20210114
  Serious: No
  Sender: FDA-Public Use
  Company Number: None

PATIENT
  Age: 84 Year
  Sex: Female
  Weight: 99 kg

DRUGS (9)
  1. SHATAVARI [Concomitant]
  2. VITAMIN D3 [Concomitant]
     Active Substance: CHOLECALCIFEROL
  3. LEVOTHYROXINE. [Concomitant]
     Active Substance: LEVOTHYROXINE
  4. METOPROLOL. [Concomitant]
     Active Substance: METOPROLOL
  5. PROBIOTIC [Concomitant]
     Active Substance: PROBIOTICS NOS
  6. FUROSEMIDE. [Concomitant]
     Active Substance: FUROSEMIDE
  7. PAROXETINE. [Concomitant]
     Active Substance: PAROXETINE
  8. ADVAIR HFA [Concomitant]
     Active Substance: FLUTICASONE PROPIONATE\SALMETEROL XINAFOATE
  9. METFORMIN [Suspect]
     Active Substance: METFORMIN HYDROCHLORIDE
     Indication: GLUCOSE TOLERANCE IMPAIRED
     Dosage: ?          QUANTITY:1 TABLET(S);?
     Route: 048

REACTIONS (6)
  - Diarrhoea [None]
  - Head discomfort [None]
  - Gait disturbance [None]
  - Nausea [None]
  - Pulmonary congestion [None]
  - Throat tightness [None]

NARRATIVE: CASE EVENT DATE: 20201026
